FAERS Safety Report 24912693 (Version 3)
Quarter: 2025Q2

REPORT INFORMATION
  Report Type: Spontaneous
  Country: JP (occurrence: JP)
  Receive Date: 20250131
  Receipt Date: 20250402
  Transmission Date: 20250716
  Serious: Yes (Hospitalization, Other)
  Sender: BRISTOL MYERS SQUIBB
  Company Number: JP-BRISTOL-MYERS SQUIBB COMPANY-2025-014156

PATIENT
  Age: 8 Decade
  Sex: Female

DRUGS (4)
  1. YERVOY [Suspect]
     Active Substance: IPILIMUMAB
     Indication: Renal cell carcinoma
     Dosage: 1ST DOSE
     Route: 041
     Dates: start: 20241205, end: 20241205
  2. YERVOY [Suspect]
     Active Substance: IPILIMUMAB
     Dosage: 2ND DOSE
     Route: 041
     Dates: start: 20241226, end: 20241226
  3. OPDIVO [Suspect]
     Active Substance: NIVOLUMAB
     Indication: Renal cell carcinoma
     Dosage: 1ST DOSE
     Route: 041
     Dates: start: 20241205, end: 20241205
  4. OPDIVO [Suspect]
     Active Substance: NIVOLUMAB
     Dosage: 2ND DOSE
     Route: 041
     Dates: start: 20241226, end: 20241226

REACTIONS (3)
  - Diarrhoea [Not Recovered/Not Resolved]
  - Liver disorder [Not Recovered/Not Resolved]
  - Thyroid disorder [Not Recovered/Not Resolved]

NARRATIVE: CASE EVENT DATE: 20250107
